FAERS Safety Report 25528852 (Version 1)
Quarter: 2025Q3

REPORT INFORMATION
  Report Type: Spontaneous
  Country: JP (occurrence: JP)
  Receive Date: 20250708
  Receipt Date: 20250708
  Transmission Date: 20251021
  Serious: Yes (Other)
  Sender: RANBAXY
  Company Number: JP-SUN PHARMACEUTICAL INDUSTRIES LTD-2025RR-515625

PATIENT
  Age: 72 Year
  Sex: Female

DRUGS (2)
  1. CARVEDILOL [Suspect]
     Active Substance: CARVEDILOL
     Indication: Hypertrophic cardiomyopathy
     Route: 065
  2. CIFENLINE [Suspect]
     Active Substance: CIFENLINE
     Indication: Hypertrophic cardiomyopathy
     Dosage: 300 MILLIGRAM, DAILY
     Route: 065

REACTIONS (1)
  - Condition aggravated [Recovering/Resolving]
